FAERS Safety Report 11422065 (Version 2)
Quarter: 2015Q3

REPORT INFORMATION
  Report Type: Spontaneous
  Country: US (occurrence: US)
  Receive Date: 20150827
  Receipt Date: 20150910
  Transmission Date: 20151125
  Serious: Yes (Hospitalization)
  Sender: FDA-Public Use
  Company Number: US-UNITED THERAPEUTICS-UNT-2015-009663

PATIENT
  Age: 52 Year
  Sex: Male
  Weight: 102.4 kg

DRUGS (2)
  1. TRACLEER [Concomitant]
     Active Substance: BOSENTAN
     Indication: PRODUCT USED FOR UNKNOWN INDICATION
  2. REMODULIN [Suspect]
     Active Substance: TREPROSTINIL
     Indication: PULMONARY ARTERIAL HYPERTENSION
     Dosage: 0.050 ?G/KG, CONTINUING
     Route: 041
     Dates: start: 20120628

REACTIONS (6)
  - Pneumonia klebsiella [Unknown]
  - Febrile infection [Recovered/Resolved]
  - Urinary tract infection [Unknown]
  - Sepsis [Unknown]
  - Device related infection [Recovered/Resolved]
  - Diarrhoea [Recovered/Resolved]

NARRATIVE: CASE EVENT DATE: 2015
